FAERS Safety Report 9061617 (Version 1)
Quarter: 2013Q1

REPORT INFORMATION
  Report Type: Spontaneous
  Country: US (occurrence: None)
  Receive Date: 20130208
  Receipt Date: 20130208
  Transmission Date: 20140127
  Serious: Yes (Hospitalization, Other)
  Sender: FDA-Public Use
  Company Number: None

PATIENT
  Age: 64 Year
  Sex: Female
  Weight: 168 kg

DRUGS (2)
  1. TYGACIL [Suspect]
     Indication: ABSCESS
     Dosage: EVERY 12HR
     Route: 042
     Dates: start: 20121228, end: 20130101
  2. TYGACIL [Suspect]
     Dosage: EVERY 12HR
     Route: 042
     Dates: start: 20121228, end: 20130101

REACTIONS (1)
  - Pancreatitis [None]
